FAERS Safety Report 12021374 (Version 1)
Quarter: 2016Q1

REPORT INFORMATION
  Report Type: Spontaneous
  Country: TR (occurrence: TR)
  Receive Date: 20160206
  Receipt Date: 20160206
  Transmission Date: 20160526
  Serious: Yes (Other)
  Sender: FDA-Public Use
  Company Number: TR-SUN PHARMACEUTICAL INDUSTRIES LTD-2016R1-111107

PATIENT
  Age: 13 Year
  Sex: Male

DRUGS (14)
  1. HALOPERIDOL. [Concomitant]
     Active Substance: HALOPERIDOL
     Indication: AUTISM
     Dosage: MAX 15 MG/DAY
     Route: 065
  2. OXCARBAZEPINE. [Concomitant]
     Active Substance: OXCARBAZEPINE
     Indication: AUTISM
     Dosage: MAX 150 MG/DAY
     Route: 065
  3. MIRTAZAPINE. [Concomitant]
     Active Substance: MIRTAZAPINE
     Indication: AUTISM
     Dosage: UNK
     Route: 065
  4. RISEPERIDONE [Concomitant]
     Indication: AUTISM
     Dosage: MAX 3 MG/DAY
     Route: 065
  5. QUETIAPINE [Concomitant]
     Active Substance: QUETIAPINE
     Indication: AUTISM
     Dosage: MAX 600 MG/DAY
     Route: 065
  6. OLANZAPINE. [Concomitant]
     Active Substance: OLANZAPINE
     Indication: AUTISM
     Dosage: MAX 5 MG/DAY
     Route: 065
  7. CLONAZEPAM. [Concomitant]
     Active Substance: CLONAZEPAM
     Indication: AUTISM
     Dosage: MAX 4 MG/DAY
     Route: 065
  8. CLOZAPINE. [Suspect]
     Active Substance: CLOZAPINE
     Indication: SEIZURE
     Dosage: 300 MG, DAILY
     Route: 065
  9. FLUOXETINE [Concomitant]
     Active Substance: FLUOXETINE HYDROCHLORIDE
     Indication: AUTISM
     Dosage: MAX 40MG/DAY
     Route: 065
  10. SODIUM VALPROATE [Concomitant]
     Active Substance: VALPROATE SODIUM
     Indication: AUTISM
     Dosage: 500 MG, DAILY
     Route: 065
  11. ARIPIPRAZOLE. [Concomitant]
     Active Substance: ARIPIPRAZOLE
     Indication: AUTISM
     Dosage: MAX 10 MG/DAY
     Route: 065
  12. CHLORPROMAZINE. [Concomitant]
     Active Substance: CHLORPROMAZINE
     Indication: AUTISM
     Dosage: MAX 150 MG/DAY
     Route: 065
  13. SODIUM VALPROATE [Concomitant]
     Active Substance: VALPROATE SODIUM
     Indication: AUTISM
     Dosage: MAX 1000 MG/DAY
     Route: 065
  14. CARBAMAZEPINE. [Concomitant]
     Active Substance: CARBAMAZEPINE
     Indication: AUTISM
     Dosage: MAX 400 MG/DAY
     Route: 065

REACTIONS (1)
  - Condition aggravated [Recovering/Resolving]
